FAERS Safety Report 7659371-5 (Version None)
Quarter: 2011Q3

REPORT INFORMATION
  Report Type: 
  Country: None (occurrence: None)
  Receive Date: 20110805
  Receipt Date: 20110725
  Transmission Date: 20111222
  Serious: Yes (Other)
  Sender: FDA-Public Use
  Company Number: US-ROCHE-772914

PATIENT
  Sex: Male
  Weight: 80.7 kg

DRUGS (2)
  1. ACCUTANE [Suspect]
     Indication: ACNE
     Route: 065
     Dates: start: 20010101
  2. ACCUTANE [Suspect]
     Route: 065
     Dates: start: 20020611, end: 20020901

REACTIONS (7)
  - ACNE [None]
  - EMOTIONAL DISTRESS [None]
  - SUICIDAL IDEATION [None]
  - INFLAMMATORY BOWEL DISEASE [None]
  - DEPRESSION [None]
  - COLITIS ULCERATIVE [None]
  - EPISTAXIS [None]
